FAERS Safety Report 20520039 (Version 7)
Quarter: 2022Q4

REPORT INFORMATION
  Report Type: Report from Study
  Country: CA (occurrence: CA)
  Receive Date: 20220225
  Receipt Date: 20221117
  Transmission Date: 20230113
  Serious: Yes (Other)
  Sender: FDA-Public Use
  Company Number: CA-TAKEDA-2022TUS012546

PATIENT
  Age: 68 Year
  Sex: Male

DRUGS (17)
  1. VEDOLIZUMAB [Suspect]
     Active Substance: VEDOLIZUMAB
     Indication: Colitis ulcerative
     Dosage: 300 MILLIGRAM
     Route: 042
     Dates: start: 20200627
  2. VEDOLIZUMAB [Suspect]
     Active Substance: VEDOLIZUMAB
     Dosage: 300 MILLIGRAM
     Route: 042
  3. VEDOLIZUMAB [Suspect]
     Active Substance: VEDOLIZUMAB
     Dosage: 300 MILLIGRAM
     Route: 042
  4. VEDOLIZUMAB [Suspect]
     Active Substance: VEDOLIZUMAB
     Dosage: 300 MILLIGRAM
     Route: 042
     Dates: end: 20221114
  5. BISOPROLOL [Concomitant]
     Active Substance: BISOPROLOL
     Dosage: 5 MILLIGRAM
  6. BISOPROLOL [Concomitant]
     Active Substance: BISOPROLOL
     Dosage: 10 MILLIGRAM
     Route: 048
     Dates: start: 20220722
  7. IMODIUM [Concomitant]
     Active Substance: LOPERAMIDE HYDROCHLORIDE
     Dosage: UNK
  8. RAMIPRIL [Concomitant]
     Active Substance: RAMIPRIL
     Dosage: 2.5 MILLIGRAM
  9. VITAMIN D NOS [Concomitant]
     Active Substance: VITAMIN D NOS
     Dosage: UNK
  10. ASPIRIN [Concomitant]
     Active Substance: ASPIRIN
     Dosage: 81 MILLIGRAM
  11. CALCIUM [Concomitant]
     Active Substance: CALCIUM
     Dosage: UNK
  12. MESALAMINE [Concomitant]
     Active Substance: MESALAMINE
     Dosage: 2.4 GRAM
     Route: 048
     Dates: start: 20220207
  13. MESALAMINE [Concomitant]
     Active Substance: MESALAMINE
     Dosage: 4.8 MILLIGRAM
     Route: 048
     Dates: start: 20220614
  14. PREDNISONE [Concomitant]
     Active Substance: PREDNISONE
     Dosage: 50 MILLIGRAM
     Dates: start: 20191101
  15. PREDNISONE [Concomitant]
     Active Substance: PREDNISONE
     Dosage: 40 MILLIGRAM
     Dates: start: 20220422, end: 20220614
  16. XARELTO [Concomitant]
     Active Substance: RIVAROXABAN
     Dosage: 20 MILLIGRAM
     Route: 048
     Dates: start: 20220722
  17. VANCOMYCIN [Concomitant]
     Active Substance: VANCOMYCIN
     Dosage: UNK
     Dates: start: 20220801

REACTIONS (4)
  - Colitis ulcerative [Unknown]
  - Abscess [Unknown]
  - Gastrointestinal infection [Unknown]
  - Drug effect less than expected [Not Recovered/Not Resolved]

NARRATIVE: CASE EVENT DATE: 20220101
